FAERS Safety Report 4390360-2 (Version None)
Quarter: 2004Q2

REPORT INFORMATION
  Report Type: 
  Country: None (occurrence: None)
  Receive Date: 20040630
  Receipt Date: 20040625
  Transmission Date: 20050107
  Serious: Yes (Other)
  Sender: FDA-Public Use
  Company Number: ENT 2004-0125

PATIENT
  Age: 66 Year
  Sex: Male

DRUGS (2)
  1. COMTAN [Suspect]
     Indication: PARKINSON'S DISEASE
     Dates: start: 20040428, end: 20040610
  2. MADOPAR [Concomitant]

REACTIONS (2)
  - HYPOMANIA [None]
  - PARKINSON'S DISEASE [None]
